FAERS Safety Report 6507751-3 (Version None)
Quarter: 2009Q4

REPORT INFORMATION
  Report Type: 
  Country: None (occurrence: None)
  Receive Date: 20091201
  Receipt Date: 20090714
  Transmission Date: 20100525
  Serious: Yes (Hospitalization)
  Sender: FDA-Public Use
  Company Number: 2009-200847-NL

PATIENT
  Age: 17 Year
  Sex: Female
  Weight: 59.4 kg

DRUGS (2)
  1. NUVARING [Suspect]
     Indication: CONTRACEPTION
     Dates: start: 20070513, end: 20081201
  2. WELLBUTRIN [Concomitant]

REACTIONS (3)
  - DEEP VEIN THROMBOSIS [None]
  - NECK PAIN [None]
  - PULMONARY EMBOLISM [None]
